FAERS Safety Report 18491919 (Version 1)
Quarter: 2020Q4

REPORT INFORMATION
  Report Type: Spontaneous
  Country: IT (occurrence: IT)
  Receive Date: 20201111
  Receipt Date: 20201111
  Transmission Date: 20210114
  Serious: Yes (Death, Other)
  Sender: FDA-Public Use
  Company Number: IT-FRESENIUS KABI-FK202011983

PATIENT
  Age: 67 Year
  Sex: Female

DRUGS (3)
  1. PACLITAXEL (MANUFACTURER UNKNOWN) [Suspect]
     Active Substance: PACLITAXEL
     Dosage: WITH 80 PERCENT REDUCED DOSE
     Route: 065
     Dates: start: 2018, end: 2018
  2. TRASTUZUMAB. [Concomitant]
     Active Substance: TRASTUZUMAB
     Indication: EXTRAMAMMARY PAGET^S DISEASE
     Dosage: FOR 18 WEEKS
     Route: 065
     Dates: start: 201806, end: 2018
  3. PACLITAXEL (MANUFACTURER UNKNOWN) [Suspect]
     Active Substance: PACLITAXEL
     Indication: EXTRAMAMMARY PAGET^S DISEASE
     Route: 065
     Dates: start: 201806, end: 2018

REACTIONS (9)
  - Alopecia [Unknown]
  - Skin discolouration [Unknown]
  - Neurotoxicity [Unknown]
  - Off label use [Unknown]
  - Fatigue [Unknown]
  - Neuropathy peripheral [Unknown]
  - Nausea [Unknown]
  - Constipation [Unknown]
  - Anaemia [Unknown]
